FAERS Safety Report 15126764 (Version 1)
Quarter: 2018Q3

REPORT INFORMATION
  Report Type: Spontaneous
  Country: US (occurrence: US)
  Receive Date: 20180710
  Receipt Date: 20180710
  Transmission Date: 20181010
  Serious: No
  Sender: FDA-Public Use
  Company Number: US-PERRIGO-17US024380

PATIENT
  Sex: Female

DRUGS (1)
  1. MICONAZOLE 1 [Suspect]
     Active Substance: MICONAZOLE NITRATE
     Indication: PRODUCT USED FOR UNKNOWN INDICATION
     Dosage: 1 APPLICATION, SINGLE
     Route: 061
     Dates: start: 20170602, end: 20170602

REACTIONS (2)
  - Vulvovaginal pain [Unknown]
  - Chemical burn [Unknown]

NARRATIVE: CASE EVENT DATE: 20170603
